FAERS Safety Report 13775347 (Version 1)
Quarter: 2017Q3

REPORT INFORMATION
  Report Type: Spontaneous
  Country: US (occurrence: US)
  Receive Date: 20170720
  Receipt Date: 20170720
  Transmission Date: 20171127
  Serious: Yes (Hospitalization)
  Sender: FDA-Public Use
  Company Number: None

PATIENT
  Age: 79 Year
  Sex: Female

DRUGS (1)
  1. CAPECITABINE 500MG ACCORD [Suspect]
     Active Substance: CAPECITABINE
     Indication: COLON CANCER
     Route: 048
     Dates: start: 20170616, end: 20170719

REACTIONS (8)
  - Diarrhoea [None]
  - Stomatitis [None]
  - Decreased appetite [None]
  - Nausea [None]
  - Intestinal obstruction [None]
  - Dehydration [None]
  - Infection [None]
  - Blood pressure increased [None]

NARRATIVE: CASE EVENT DATE: 20170711
